FAERS Safety Report 15731569 (Version 1)
Quarter: 2018Q4

REPORT INFORMATION
  Report Type: Spontaneous
  Country: US (occurrence: US)
  Receive Date: 20181217
  Receipt Date: 20181217
  Transmission Date: 20190205
  Serious: Yes (Other)
  Sender: FDA-Public Use
  Company Number: PHHY2018US185588

PATIENT
  Age: 80 Year
  Sex: Male

DRUGS (1)
  1. NAPROXEN. [Suspect]
     Active Substance: NAPROXEN
     Indication: ARTHRALGIA
     Dosage: UNK
     Route: 065

REACTIONS (9)
  - Hypersensitivity vasculitis [Unknown]
  - Fibrin [Unknown]
  - Purpura [Unknown]
  - Rash [Unknown]
  - Extravasation blood [Unknown]
  - Product use in unapproved indication [Unknown]
  - Necrosis [Unknown]
  - Tissue infiltration [Unknown]
  - Tenderness [Unknown]
